FAERS Safety Report 4314705-4 (Version None)
Quarter: 2004Q1

REPORT INFORMATION
  Report Type: 
  Country: None (occurrence: None)
  Receive Date: 20040310
  Receipt Date: 20040301
  Transmission Date: 20041129
  Serious: Yes (Other)
  Sender: FDA-Public Use
  Company Number: PHFR2004GB01255

PATIENT
  Age: 74 Year
  Sex: Female

DRUGS (5)
  1. RIVASTIGMINE [Suspect]
     Indication: DEMENTIA
     Dosage: 1.5 MG, BID
     Route: 048
     Dates: start: 20030609, end: 20040127
  2. NEO-CYTAMEN [Concomitant]
     Indication: PERNICIOUS ANAEMIA
     Dosage: 1MG/DAY
     Route: 030
     Dates: start: 20030101
  3. FOLIC ACID [Concomitant]
     Indication: ANAEMIA FOLATE DEFICIENCY
     Dosage: 5MG/DAY
     Route: 048
     Dates: start: 20030101
  4. AMISULPRIDE [Concomitant]
     Dosage: 25 MG, QD/MANE
     Route: 048
     Dates: start: 20040124, end: 20040127
  5. AMISULPRIDE [Concomitant]
     Dosage: 50 MG, BID
     Route: 048
     Dates: start: 20040127

REACTIONS (4)
  - DELUSIONAL PERCEPTION [None]
  - HALLUCINATION, VISUAL [None]
  - HYPOMANIA [None]
  - RESTLESSNESS [None]
